FAERS Safety Report 24305096 (Version 1)
Quarter: 2024Q3

REPORT INFORMATION
  Report Type: Spontaneous
  Country: US (occurrence: US)
  Receive Date: 20240911
  Receipt Date: 20240911
  Transmission Date: 20241016
  Serious: Yes (Other)
  Sender: BRISTOL MYERS SQUIBB
  Company Number: US-BRISTOL-MYERS SQUIBB COMPANY-2024-141644

PATIENT
  Age: 81 Year
  Sex: Female
  Weight: 63.05 kg

DRUGS (1)
  1. REVLIMID [Suspect]
     Active Substance: LENALIDOMIDE
     Indication: Plasma cell myeloma
     Dosage: DAILY FOR 14 DAYS AND 14 DAYS OFF
     Route: 048
     Dates: start: 20240604

REACTIONS (5)
  - Neuropathy peripheral [Unknown]
  - Taste disorder [Unknown]
  - Dysphonia [Unknown]
  - Muscle spasms [Unknown]
  - Off label use [Unknown]
